FAERS Safety Report 8915882 (Version 1)
Quarter: 2012Q4

REPORT INFORMATION
  Report Type: 
  Country: IT (occurrence: IT)
  Receive Date: 20121119
  Receipt Date: 20121119
  Transmission Date: 20130627
  Serious: Yes (Life-Threatening)
  Sender: FDA-Public Use
  Company Number: IT-PFIZER INC-2012285111

PATIENT
  Age: 63 Year
  Sex: Female
  Weight: 80 kg

DRUGS (3)
  1. ECALTA [Suspect]
     Indication: CANDIDIASIS
     Dosage: 100 mg, daily
     Route: 042
     Dates: start: 20121030, end: 20121109
  2. ENOXAPARINE [Concomitant]
     Indication: THROMBOSIS PROPHYLAXIS
     Dosage: 4000 IU, UNK
     Dates: start: 20121017
  3. LANSOPRAZOLE [Concomitant]
     Dosage: 30 mg, UNK
     Route: 048

REACTIONS (5)
  - Chest pain [Recovered/Resolved]
  - Erythema [Recovered/Resolved]
  - Dyspnoea [Recovered/Resolved]
  - Hypertensive crisis [Recovered/Resolved]
  - Tachycardia [Recovered/Resolved]
